FAERS Safety Report 20280597 (Version 1)
Quarter: 2022Q1

REPORT INFORMATION
  Report Type: Spontaneous
  Country: US (occurrence: None)
  Receive Date: 20220101
  Receipt Date: 20220101
  Transmission Date: 20220423
  Serious: Yes (Other)
  Sender: FDA-Public Use
  Company Number: None

PATIENT
  Sex: Female

DRUGS (2)
  1. CLOBETASOL PROPIONATE [Suspect]
     Active Substance: CLOBETASOL PROPIONATE
     Indication: Eczema
     Dosage: OTHER QUANTITY : 1 TUBE;?FREQUENCY : EVERY 8 HOURS;?
     Route: 061
     Dates: start: 20210926, end: 20211231
  2. CLOBETASOL PROPIONATE [Suspect]
     Active Substance: CLOBETASOL PROPIONATE
     Indication: Psoriasis

REACTIONS (1)
  - Rash [None]

NARRATIVE: CASE EVENT DATE: 20210926
